FAERS Safety Report 25915974 (Version 1)
Quarter: 2025Q4

REPORT INFORMATION
  Report Type: Spontaneous
  Country: JP (occurrence: JP)
  Receive Date: 20251013
  Receipt Date: 20251013
  Transmission Date: 20260117
  Serious: Yes (Hospitalization)
  Sender: JOHNSON AND JOHNSON
  Company Number: JP-JNJFOC-20241242297

PATIENT
  Age: 6 Decade
  Sex: Female

DRUGS (1)
  1. SIMPONI [Suspect]
     Active Substance: GOLIMUMAB
     Indication: Colitis ulcerative
     Dosage: DOSE UNKNOWN
     Route: 058
     Dates: start: 202406, end: 20241115

REACTIONS (3)
  - Stomatitis [Recovering/Resolving]
  - Oesophagitis [Recovering/Resolving]
  - Laryngopharyngitis [Recovering/Resolving]

NARRATIVE: CASE EVENT DATE: 20241105
